FAERS Safety Report 8259005-5 (Version None)
Quarter: 2012Q2

REPORT INFORMATION
  Report Type: 
  Country: None (occurrence: None)
  Receive Date: 20120404
  Receipt Date: 20120326
  Transmission Date: 20120825
  Serious: Yes (Hospitalization, Other)
  Sender: FDA-Public Use
  Company Number: CA-JNJFOC-20120314089

PATIENT
  Sex: Female
  Weight: 70 kg

DRUGS (5)
  1. TRAZODONE HCL [Concomitant]
     Dosage: 50 HS
     Route: 065
  2. PREVACID [Concomitant]
     Dosage: 30 ONCE A DAY
     Route: 065
  3. CELEXA [Concomitant]
     Route: 065
  4. REMICADE [Suspect]
     Indication: CROHN'S DISEASE
     Route: 042
     Dates: start: 20111018
  5. METHOTREXATE [Concomitant]
     Dosage: 0.8CC
     Route: 058

REACTIONS (5)
  - PYREXIA [None]
  - COLOSTOMY [None]
  - ILEOSTOMY [None]
  - TREATMENT FAILURE [None]
  - POSTOPERATIVE WOUND INFECTION [None]
